FAERS Safety Report 19499035 (Version 1)
Quarter: 2021Q3

REPORT INFORMATION
  Report Type: Spontaneous
  Country: US (occurrence: US)
  Receive Date: 20210707
  Receipt Date: 20210707
  Transmission Date: 20211014
  Serious: Yes (Other)
  Sender: FDA-Public Use
  Company Number: US-BION-009885

PATIENT
  Sex: Male

DRUGS (1)
  1. MEIJER IBUPROFEN 200MG LIQUIDGEL 160CT [Suspect]
     Active Substance: IBUPROFEN
     Indication: PRODUCT USED FOR UNKNOWN INDICATION
     Dosage: STRENGTH: 200MG

REACTIONS (2)
  - Malaise [Unknown]
  - Product odour abnormal [Unknown]
